FAERS Safety Report 10456090 (Version 4)
Quarter: 2015Q2

REPORT INFORMATION
  Report Type: Spontaneous
  Country: US (occurrence: None)
  Receive Date: 20140912
  Receipt Date: 20150611
  Transmission Date: 20150821
  Serious: Yes (Hospitalization)
  Sender: FDA-Public Use
  Company Number: DSU-2014-101200

PATIENT
  Age: 63 Year
  Sex: Female

DRUGS (9)
  1. NORVASC [Concomitant]
     Active Substance: AMLODIPINE BESYLATE
  2. PROVERA (MEDROXYPROGESTERONE ACETATE) [Concomitant]
  3. PROCTOZONE H (HYDROCORTISONE) [Concomitant]
  4. FLONASE [Concomitant]
     Active Substance: FLUTICASONE PROPIONATE
  5. ESTROGEN/METHYLTES [Suspect]
     Active Substance: ESTROGENS\METHYLTESTOSTERONE
     Indication: PRODUCT USED FOR UNKNOWN INDICATION
  6. PROVENTIL /00139501/  (SALBUTAMOL) [Concomitant]
  7. BENICAR HCT [Suspect]
     Active Substance: HYDROCHLOROTHIAZIDE\OLMESARTAN MEDOXOMIL
     Indication: HYPERTENSION
     Dosage: 40/12.5 MG, QD
     Route: 048
     Dates: start: 201001, end: 201208
  8. VOLTAREN /00372301/ (DICLOFENAC) [Concomitant]
  9. BENICAR [Suspect]
     Active Substance: OLMESARTAN MEDOXOMIL
     Indication: HYPERTENSION
     Dosage: UNK, ORAL
     Route: 048
     Dates: start: 200903, end: 201208

REACTIONS (32)
  - Body temperature increased [None]
  - Vomiting projectile [None]
  - Colitis microscopic [None]
  - Nausea [None]
  - Weight decreased [None]
  - Urinary tract infection [None]
  - Drug-induced liver injury [None]
  - Vomiting [None]
  - Malnutrition [None]
  - Dehydration [None]
  - Jaundice [None]
  - Metabolic acidosis [None]
  - Acute kidney injury [None]
  - Eye disorder [None]
  - Arthralgia [None]
  - Thrombocytopenia [None]
  - Hypotension [None]
  - Renal impairment [None]
  - Liver injury [None]
  - Hypokalaemia [None]
  - Dizziness [None]
  - Clostridium difficile colitis [None]
  - Cholelithiasis [None]
  - Uveitis [None]
  - Neutropenia [None]
  - Insomnia [None]
  - Presyncope [None]
  - Malabsorption [None]
  - Coeliac disease [None]
  - Gastroenteritis [None]
  - Hypomagnesaemia [None]
  - Anaemia [None]

NARRATIVE: CASE EVENT DATE: 2012
